FAERS Safety Report 11299193 (Version 1)
Quarter: 2015Q3

REPORT INFORMATION
  Report Type: Spontaneous
  Country: US (occurrence: US)
  Receive Date: 20150722
  Receipt Date: 20150722
  Transmission Date: 20151125
  Serious: No
  Sender: FDA-Public Use
  Company Number: US-ELI_LILLY_AND_COMPANY-US201205007648

PATIENT
  Sex: Male
  Weight: 96 kg

DRUGS (5)
  1. EFFIENT [Suspect]
     Active Substance: PRASUGREL HYDROCHLORIDE
     Indication: STENT PLACEMENT
     Dosage: 10 MG, QD
     Route: 048
     Dates: start: 20120517, end: 20120620
  2. VYTORIN [Concomitant]
     Active Substance: EZETIMIBE\SIMVASTATIN
     Dosage: 10/20 (UNKNOWN), UNKNOWN
  3. KLONOPIN [Concomitant]
     Active Substance: CLONAZEPAM
     Dosage: 12.5 MG, UNKNOWN
  4. ASPIRIN. [Concomitant]
     Active Substance: ASPIRIN
     Dosage: 81 (UNKNOWN), UNKNOWN
  5. TOPROL XL [Concomitant]
     Active Substance: METOPROLOL SUCCINATE
     Dosage: UNK, UNKNOWN

REACTIONS (3)
  - Chest discomfort [Not Recovered/Not Resolved]
  - Anxiety [Not Recovered/Not Resolved]
  - Nervousness [Not Recovered/Not Resolved]

NARRATIVE: CASE EVENT DATE: 20120518
